FAERS Safety Report 23976920 (Version 1)
Quarter: 2024Q2

REPORT INFORMATION
  Report Type: Report from Study
  Country: IT (occurrence: IT)
  Receive Date: 20240614
  Receipt Date: 20240614
  Transmission Date: 20240716
  Serious: Yes (Other)
  Sender: FDA-Public Use
  Company Number: IT-BEH-2024173508

PATIENT

DRUGS (3)
  1. PROTHROMBIN COMPLEX CONCENTRATE [Suspect]
     Active Substance: COAGULATION FACTOR IX HUMAN\COAGULATION FACTOR VII HUMAN\COAGULATION FACTOR X HUMAN\PROTEIN C\PROTEI
     Indication: Gastrointestinal haemorrhage
     Route: 065
  2. VITAMIN K [Suspect]
     Active Substance: PHYTONADIONE
     Route: 065
  3. WARFARIN [Concomitant]
     Active Substance: WARFARIN
     Route: 065

REACTIONS (1)
  - Ischaemic stroke [Unknown]
